FAERS Safety Report 20059749 (Version 1)
Quarter: 2021Q4

REPORT INFORMATION
  Report Type: Spontaneous
  Country: ES (occurrence: ES)
  Receive Date: 20211111
  Receipt Date: 20211111
  Transmission Date: 20220304
  Serious: Yes (Other)
  Sender: FDA-Public Use
  Company Number: None

PATIENT
  Age: 26 Year
  Sex: Female

DRUGS (3)
  1. TOPIRAMATE [Suspect]
     Active Substance: TOPIRAMATE
     Indication: Migraine
     Dosage: 25 MILLIGRAM, QD
     Route: 048
     Dates: start: 20210225, end: 20210330
  2. MODERNA COVID-19 VACCINE [Suspect]
     Active Substance: CX-024414
     Indication: COVID-19 immunisation
     Dosage: 1? DOSIS
     Route: 030
     Dates: start: 20210219, end: 20210219
  3. MODERNA COVID-19 VACCINE [Suspect]
     Active Substance: CX-024414
     Dosage: 2? DOSIS
     Route: 030
     Dates: start: 20210319, end: 20210319

REACTIONS (3)
  - Dysaesthesia [Not Recovered/Not Resolved]
  - Paraesthesia [Not Recovered/Not Resolved]
  - Dizziness [Not Recovered/Not Resolved]

NARRATIVE: CASE EVENT DATE: 20210324
